FAERS Safety Report 6725738-2 (Version None)
Quarter: 2010Q2

REPORT INFORMATION
  Report Type: 
  Country: None (occurrence: None)
  Receive Date: 20100514
  Receipt Date: 20100506
  Transmission Date: 20101027
  Serious: Yes (Hospitalization, Other)
  Sender: FDA-Public Use
  Company Number: BR-PFIZER INC-2010057646

PATIENT
  Sex: Female
  Weight: 75 kg

DRUGS (8)
  1. CELEBRA [Suspect]
     Indication: RHEUMATOID ARTHRITIS
     Route: 048
  2. ETANERCEPT [Suspect]
     Indication: RHEUMATOID ARTHRITIS
     Dosage: 50 MG 1 APPLICATION PER WEEK
     Dates: start: 20080101
  3. RIVOTRIL [Suspect]
     Indication: INSOMNIA
     Dosage: 2 MG, 1X/DAY
     Route: 048
  4. RIVOTRIL [Suspect]
     Dosage: 3 MG, 1X/DAY (1 TABLET AND A HALF)
     Route: 048
  5. RIVOTRIL [Suspect]
     Dosage: 13 DROPS, UNK
     Route: 048
  6. PRISTIQ [Concomitant]
     Indication: DEPRESSION
     Dosage: 50 MG, 1X/DAY
     Dates: start: 20100101
  7. PANTOPRAZOLE [Concomitant]
     Indication: GASTRITIS
     Dosage: 40 MG, 1X/DAY
     Dates: start: 20080101
  8. PANTOPRAZOLE [Concomitant]
     Indication: ULCER

REACTIONS (12)
  - AMNESIA [None]
  - ARTHRALGIA [None]
  - BEDRIDDEN [None]
  - CONSTIPATION [None]
  - CRYING [None]
  - DRUG INEFFECTIVE [None]
  - GAIT DISTURBANCE [None]
  - GASTRIC DISORDER [None]
  - INSOMNIA [None]
  - MEMORY IMPAIRMENT [None]
  - URINARY TRACT INFECTION [None]
  - WEIGHT DECREASED [None]
